FAERS Safety Report 9292733 (Version 1)
Quarter: 2013Q2

REPORT INFORMATION
  Report Type: Spontaneous
  Country: US (occurrence: None)
  Receive Date: 20130515
  Receipt Date: 20130515
  Transmission Date: 20140414
  Serious: Yes (Other)
  Sender: FDA-Public Use
  Company Number: None

PATIENT
  Sex: Female
  Weight: 68.04 kg

DRUGS (1)
  1. VAGIFEM [Suspect]
     Indication: MENOPAUSE
     Dates: start: 201209, end: 201304

REACTIONS (2)
  - Alopecia [None]
  - Alopecia [None]
